FAERS Safety Report 18372880 (Version 58)
Quarter: 2025Q4

REPORT INFORMATION
  Report Type: Spontaneous
  Country: IL (occurrence: IL)
  Receive Date: 20201012
  Receipt Date: 20251205
  Transmission Date: 20260118
  Serious: Yes (Other)
  Sender: PFIZER
  Company Number: IL-PFIZER INC-2018092399

PATIENT
  Age: 44 Year
  Sex: Female

DRUGS (38)
  1. ELELYSO [Suspect]
     Active Substance: TALIGLUCERASE ALFA
     Indication: Gaucher^s disease
     Dosage: TWICE A MONTH
     Route: 042
     Dates: start: 20160301
  2. ELELYSO [Suspect]
     Active Substance: TALIGLUCERASE ALFA
     Dosage: TWICE A MONTH
     Route: 042
  3. ELELYSO [Suspect]
     Active Substance: TALIGLUCERASE ALFA
     Dosage: TWICE A MONTH
     Route: 042
  4. ELELYSO [Suspect]
     Active Substance: TALIGLUCERASE ALFA
     Dosage: TWICE A MONTH
     Route: 042
  5. ELELYSO [Suspect]
     Active Substance: TALIGLUCERASE ALFA
     Dosage: TWICE A MONTH
     Route: 042
  6. ELELYSO [Suspect]
     Active Substance: TALIGLUCERASE ALFA
     Dosage: TWICE A MONTH
     Route: 042
  7. ELELYSO [Suspect]
     Active Substance: TALIGLUCERASE ALFA
     Dosage: TWICE A MONTH
     Route: 042
  8. ELELYSO [Suspect]
     Active Substance: TALIGLUCERASE ALFA
     Dosage: TWICE A MONTH
     Route: 042
  9. ELELYSO [Suspect]
     Active Substance: TALIGLUCERASE ALFA
     Dosage: TWICE A MONTH
     Route: 042
  10. ELELYSO [Suspect]
     Active Substance: TALIGLUCERASE ALFA
     Dosage: TWICE A MONTH
     Route: 042
  11. ELELYSO [Suspect]
     Active Substance: TALIGLUCERASE ALFA
     Dosage: TWICE A MONTH, 5 VIALS TWICE A MONTH
     Route: 042
  12. ELELYSO [Suspect]
     Active Substance: TALIGLUCERASE ALFA
     Dosage: TWICE A MONTH, 5 VIALS
     Route: 042
  13. ELELYSO [Suspect]
     Active Substance: TALIGLUCERASE ALFA
     Dosage: TWICE A MONTH, 5 VIALS
     Route: 042
  14. ELELYSO [Suspect]
     Active Substance: TALIGLUCERASE ALFA
     Dosage: TWICE A MONTH, 5 VIALS
     Route: 042
  15. ELELYSO [Suspect]
     Active Substance: TALIGLUCERASE ALFA
     Dosage: TWICE A MONTH, 5 VIALS
     Route: 042
  16. ELELYSO [Suspect]
     Active Substance: TALIGLUCERASE ALFA
     Dosage: 10 VIALS A MONTH
  17. ELELYSO [Suspect]
     Active Substance: TALIGLUCERASE ALFA
     Dosage: 10 VIALS A MONTH
     Route: 042
  18. ELELYSO [Suspect]
     Active Substance: TALIGLUCERASE ALFA
     Dosage: 10 VIALS A MONTH
     Route: 042
     Dates: start: 20230418, end: 20230418
  19. ELELYSO [Suspect]
     Active Substance: TALIGLUCERASE ALFA
     Dosage: 5 VIALS PER TREATMEANT, TWICE MONTHLY
     Route: 042
  20. ELELYSO [Suspect]
     Active Substance: TALIGLUCERASE ALFA
     Dosage: 5 VIALS PER TREATMEANT, TWICE MONTHLY
     Route: 042
     Dates: start: 20230904, end: 20230904
  21. ELELYSO [Suspect]
     Active Substance: TALIGLUCERASE ALFA
     Dosage: 10 VIALS TWICE A MONTH
     Route: 042
  22. ELELYSO [Suspect]
     Active Substance: TALIGLUCERASE ALFA
     Dosage: 5 VIALS PER TREATMENT, TWICE MONTHLY. 10 VIALS TOTAL FOR A MONTH
     Route: 042
     Dates: start: 20231012, end: 20231012
  23. ELELYSO [Suspect]
     Active Substance: TALIGLUCERASE ALFA
     Dosage: 5 VIALS PER TREATMENT, TWICE MONTHLY
     Route: 042
     Dates: start: 20240325, end: 20240325
  24. ELELYSO [Suspect]
     Active Substance: TALIGLUCERASE ALFA
     Dosage: 5 VIALS PER TREATMENT, TWICE MONTHLY
     Route: 042
     Dates: start: 20240416, end: 20240416
  25. ELELYSO [Suspect]
     Active Substance: TALIGLUCERASE ALFA
     Dosage: 5 VIALS TWICE MONTHLY
     Route: 042
     Dates: start: 20240515, end: 20240515
  26. ELELYSO [Suspect]
     Active Substance: TALIGLUCERASE ALFA
     Dosage: 5 VIALS TWICE MONTHLY
     Route: 042
     Dates: start: 20240702, end: 20240702
  27. ELELYSO [Suspect]
     Active Substance: TALIGLUCERASE ALFA
     Dosage: 5 VIALS ONCE TWICE MONTHLY
     Route: 042
     Dates: start: 20241015, end: 20241015
  28. ELELYSO [Suspect]
     Active Substance: TALIGLUCERASE ALFA
     Dosage: 5 VIALS TWICE MONTHLY
     Route: 042
     Dates: start: 20241210, end: 20241210
  29. ELELYSO [Suspect]
     Active Substance: TALIGLUCERASE ALFA
     Dosage: 5 VIALS TWICE MONTHLY
     Route: 042
     Dates: start: 20241231, end: 20241231
  30. ELELYSO [Suspect]
     Active Substance: TALIGLUCERASE ALFA
     Dosage: 200 IU, 5 VIALS TWICE MONTHLY
     Route: 042
     Dates: start: 20250114, end: 20250114
  31. ELELYSO [Suspect]
     Active Substance: TALIGLUCERASE ALFA
     Dosage: 5 VIALS TWICE MONTHLY
     Route: 042
     Dates: start: 20250210, end: 20250210
  32. ELELYSO [Suspect]
     Active Substance: TALIGLUCERASE ALFA
     Dosage: 5 VIALS TWICE MONTHLY
     Route: 042
     Dates: start: 20250312, end: 20250312
  33. ELELYSO [Suspect]
     Active Substance: TALIGLUCERASE ALFA
     Dosage: 5 VIALS TWICE MONTHLY
     Route: 042
     Dates: start: 20250408, end: 20250408
  34. ELELYSO [Suspect]
     Active Substance: TALIGLUCERASE ALFA
     Dosage: 200 IU, 5 VIALS TWICE MONTHLY
     Route: 042
     Dates: start: 20250526, end: 20250526
  35. ELELYSO [Suspect]
     Active Substance: TALIGLUCERASE ALFA
     Dosage: 200 IU, 5 VIALS TWICE MONTHLY
     Route: 042
     Dates: start: 20250720, end: 20250720
  36. ELELYSO [Suspect]
     Active Substance: TALIGLUCERASE ALFA
     Dosage: 200 IU, 5 VIALS TWICE MONTHLY
     Route: 042
     Dates: start: 20250804, end: 20250804
  37. ELELYSO [Suspect]
     Active Substance: TALIGLUCERASE ALFA
     Dosage: 5 VIALS TWICE A MONTH
     Route: 042
     Dates: start: 20250928, end: 20250928
  38. ELELYSO [Suspect]
     Active Substance: TALIGLUCERASE ALFA
     Dosage: 5 VIALS TWICE A MONTH
     Route: 042
     Dates: start: 20251130, end: 20251130

REACTIONS (23)
  - COVID-19 [Recovered/Resolved]
  - Uterine polyp [Unknown]
  - Hepatic function abnormal [Recovering/Resolving]
  - Vitamin B12 decreased [Unknown]
  - Sneezing [Recovered/Resolved]
  - Fatigue [Unknown]
  - Drug monitoring procedure not performed [Unknown]
  - Back pain [Recovering/Resolving]
  - Asthenia [Recovered/Resolved]
  - Diarrhoea [Recovered/Resolved]
  - Nausea [Recovered/Resolved]
  - Abdominal pain [Recovered/Resolved]
  - Nasopharyngitis [Recovered/Resolved]
  - Insomnia [Recovering/Resolving]
  - Eye infection [Not Recovered/Not Resolved]
  - Musculoskeletal stiffness [Recovering/Resolving]
  - Influenza [Recovering/Resolving]
  - Neck mass [Not Recovered/Not Resolved]
  - Jaw disorder [Unknown]
  - Hypoaesthesia [Unknown]
  - Oropharyngeal pain [Recovered/Resolved]
  - Product dose omission in error [Unknown]
  - Inappropriate schedule of product administration [Unknown]

NARRATIVE: CASE EVENT DATE: 20180101
